FAERS Safety Report 22698732 (Version 3)
Quarter: 2024Q1

REPORT INFORMATION
  Report Type: Spontaneous
  Country: CA (occurrence: None)
  Receive Date: 20230713
  Receipt Date: 20240307
  Transmission Date: 20240410
  Serious: No
  Sender: FDA-Public Use
  Company Number: CA-ROCHE-3386749

PATIENT
  Sex: Female

DRUGS (2)
  1. OCREVUS [Suspect]
     Active Substance: OCRELIZUMAB
     Indication: Relapsing-remitting multiple sclerosis
     Route: 065
  2. OCREVUS [Suspect]
     Active Substance: OCRELIZUMAB
     Dosage: INFUSION NUMBER 5
     Route: 065
     Dates: start: 20230710

REACTIONS (4)
  - Fungal infection [Recovered/Resolved]
  - Joint swelling [Unknown]
  - Sinusitis [Recovered/Resolved]
  - Ligament sprain [Unknown]
